FAERS Safety Report 24891735 (Version 3)
Quarter: 2025Q3

REPORT INFORMATION
  Report Type: Spontaneous
  Country: US (occurrence: US)
  Receive Date: 20250127
  Receipt Date: 20250811
  Transmission Date: 20251021
  Serious: No
  Sender: SANOFI AVENTIS
  Company Number: US-SA-2025SA024403

PATIENT
  Age: 51 Year
  Sex: Female

DRUGS (1)
  1. DUPIXENT [Suspect]
     Active Substance: DUPILUMAB
     Indication: Nasal polyps
     Dosage: 300 MG, QOW
     Route: 058

REACTIONS (7)
  - Eye pain [Recovered/Resolved]
  - Nasal congestion [Unknown]
  - Eyelid skin dryness [Unknown]
  - Eyelids pruritus [Unknown]
  - Ocular hyperaemia [Recovered/Resolved]
  - Eye pruritus [Unknown]
  - Dry eye [Unknown]
